FAERS Safety Report 9508164 (Version 2)
Quarter: 2013Q4

REPORT INFORMATION
  Report Type: Spontaneous
  Country: US (occurrence: US)
  Receive Date: 20130909
  Receipt Date: 20131016
  Transmission Date: 20140711
  Serious: No
  Sender: FDA-Public Use
  Company Number: US-PFIZER INC-2013255032

PATIENT
  Sex: Male

DRUGS (1)
  1. AZITHROMYCIN [Suspect]
     Indication: SINUS DISORDER
     Dosage: UNK
     Dates: start: 20130830

REACTIONS (3)
  - Nausea [Unknown]
  - Motion sickness [Unknown]
  - Malaise [Unknown]
